FAERS Safety Report 26165211 (Version 1)
Quarter: 2025Q4

REPORT INFORMATION
  Report Type: Other
  Country: JP (occurrence: JP)
  Receive Date: 20251216
  Receipt Date: 20251216
  Transmission Date: 20260117
  Serious: Yes (Other)
  Sender: MERCK KGAA
  Company Number: JP-Merck Healthcare KGaA-2025063448

PATIENT
  Age: 75 Year
  Sex: Female

DRUGS (1)
  1. BAVENCIO [Suspect]
     Active Substance: AVELUMAB
     Indication: Transitional cell cancer of the renal pelvis and ureter

REACTIONS (1)
  - Tumour pseudoprogression [Unknown]
